FAERS Safety Report 20185784 (Version 1)
Quarter: 2021Q4

REPORT INFORMATION
  Report Type: Spontaneous
  Country: US (occurrence: US)
  Receive Date: 20211215
  Receipt Date: 20211215
  Transmission Date: 20220303
  Serious: No
  Sender: FDA-Public Use
  Company Number: US-AMGEN-USASP2021196258

PATIENT
  Age: 76 Year
  Sex: Female

DRUGS (7)
  1. EVENITY [Suspect]
     Active Substance: ROMOSOZUMAB-AQQG
     Indication: Osteoporosis postmenopausal
     Dosage: 210 MILLIGRAM, QMO
     Route: 058
     Dates: start: 20211101
  2. ALPHAGAN P [Concomitant]
     Active Substance: BRIMONIDINE TARTRATE
     Dosage: UNK (IN THE MORNING AND BEFORE DINNER TIME)
     Route: 065
  3. CALCIUM [Concomitant]
     Active Substance: CALCIUM
     Dosage: UNK UNK, UNK
     Route: 065
  4. LATANOPROST [Concomitant]
     Active Substance: LATANOPROST
     Dosage: UNK (IN THE EVENING BEFORE BED)
     Route: 065
  5. FOSTEUM PLUS [Concomitant]
     Dosage: UNK
  6. CHOLECALCIFEROL [Concomitant]
     Active Substance: CHOLECALCIFEROL
     Dosage: 4000 UNK ( 4,000 IU)
  7. VITAMIN C [Concomitant]
     Active Substance: ASCORBIC ACID
     Dosage: 1000 MILLIGRAM

REACTIONS (2)
  - Musculoskeletal pain [Unknown]
  - Injection site pain [Unknown]

NARRATIVE: CASE EVENT DATE: 20210101
